FAERS Safety Report 17804351 (Version 2)
Quarter: 2020Q2

REPORT INFORMATION
  Report Type: Spontaneous
  Country: AU (occurrence: AU)
  Receive Date: 20200519
  Receipt Date: 20200528
  Transmission Date: 20200714
  Serious: Yes (Hospitalization, Other)
  Sender: FDA-Public Use
  Company Number: AU-VERTEX PHARMACEUTICALS-2020-010871

PATIENT
  Sex: Female

DRUGS (24)
  1. LEVEMIR [Concomitant]
     Active Substance: INSULIN DETEMIR
     Dosage: 4 TO 6 UNITS MANE
  2. MOXONIDINE [Concomitant]
     Active Substance: MOXONIDINE
     Dosage: 0.2MG MANE, 0.4MG NOCTE
  3. AMITRIPTYLINE [Concomitant]
     Active Substance: AMITRIPTYLINE
     Dosage: 50MG NOCTE
  4. VITABDECK [Concomitant]
  5. KALYDECO [Suspect]
     Active Substance: IVACAFTOR
     Indication: CYSTIC FIBROSIS
     Dosage: 150 MG, BID
     Route: 048
  6. CALCIUM RESONIUM [Concomitant]
     Dosage: 15 GRAM DAILY
  7. PANTOPRAZOLE [Concomitant]
     Active Substance: PANTOPRAZOLE
     Dosage: 40 MG, QD
  8. CREON [Concomitant]
     Active Substance: PANCRELIPASE AMYLASE\PANCRELIPASE LIPASE\PANCRELIPASE PROTEASE
     Dosage: 25000 UNITS 4 DAILY
  9. PULMOZYME [Concomitant]
     Active Substance: DORNASE ALFA
     Dosage: 2.5 MG DAILY
  10. PERINDOPRIL [Concomitant]
     Active Substance: PERINDOPRIL
     Dosage: 10 MG DAILY
  11. FUROSEMIDE. [Concomitant]
     Active Substance: FUROSEMIDE
     Dosage: 40 MG, QD
  12. VITAMIN D [VITAMIN D NOS] [Concomitant]
     Active Substance: VITAMIN D NOS
     Dosage: 1000 IU DAILY
  13. MOTILIUM [Concomitant]
     Active Substance: DOMPERIDONE
     Dosage: 10 MG TDS PRN
  14. PRAZOSIN. [Concomitant]
     Active Substance: PRAZOSIN
     Dosage: 1 MG, PRN
  15. AZITHROMYCIN ANHYDROUS. [Concomitant]
     Active Substance: AZITHROMYCIN ANHYDROUS
     Dosage: MONDAY, WEDNESDAY, FRIDAY
  16. CICLESONIDE [Concomitant]
     Active Substance: CICLESONIDE
     Dosage: 160MCG 2 PUFFS OD
  17. METOPROLOL. [Concomitant]
     Active Substance: METOPROLOL
     Dosage: 50 MG, BID
  18. MAGNESIUM ASPARTATE [Concomitant]
     Active Substance: MAGNESIUM ASPARTATE
     Dosage: 1000 MG NOCTE
  19. MONTELUKAST [Concomitant]
     Active Substance: MONTELUKAST SODIUM
     Dosage: 10 MG, QD
  20. SODIBIC [Concomitant]
     Dosage: 840 MG, QD
  21. APIDRA [Concomitant]
     Active Substance: INSULIN GLULISINE
     Dosage: 2-8 WITH MEALS
  22. SPIOLTO RESPIMAT [Concomitant]
     Active Substance: OLODATEROL HYDROCHLORIDE\TIOTROPIUM BROMIDE MONOHYDRATE
     Dosage: 2 PUFFS QD
  23. CALCIUM CARBONATE. [Concomitant]
     Active Substance: CALCIUM CARBONATE
     Dosage: 600 MG TDS
  24. ZINC SULFATE MONOHYDRATE. [Concomitant]
     Active Substance: ZINC SULFATE MONOHYDRATE
     Dosage: 1 UNK, QD

REACTIONS (4)
  - End stage renal disease [Unknown]
  - Cystic fibrosis related diabetes [Unknown]
  - Infective pulmonary exacerbation of cystic fibrosis [Unknown]
  - General physical health deterioration [Unknown]

NARRATIVE: CASE EVENT DATE: 2005
